FAERS Safety Report 11801474 (Version 1)
Quarter: 2015Q4

REPORT INFORMATION
  Report Type: Spontaneous
  Country: US (occurrence: US)
  Receive Date: 20151204
  Receipt Date: 20151204
  Transmission Date: 20160305
  Serious: Yes (Hospitalization)
  Sender: FDA-Public Use
  Company Number: US-BEH-2015056280

PATIENT
  Sex: Male
  Weight: 67 kg

DRUGS (17)
  1. HIZENTRA [Suspect]
     Active Substance: HUMAN IMMUNOGLOBULIN G
     Indication: IMMUNODEFICIENCY
     Route: 058
  2. ACETAMINOPHEN. [Concomitant]
     Active Substance: ACETAMINOPHEN
  3. EPIPEN [Concomitant]
     Active Substance: EPINEPHRINE
  4. POTASSIUM CHLORIDE. [Concomitant]
     Active Substance: POTASSIUM CHLORIDE
  5. MAGNESIUM OXIDE. [Concomitant]
     Active Substance: MAGNESIUM OXIDE
  6. VITAMIN D3 [Concomitant]
     Active Substance: CHOLECALCIFEROL
  7. FUROSEMIDE. [Concomitant]
     Active Substance: FUROSEMIDE
  8. CALCIUM CARBONATE. [Concomitant]
     Active Substance: CALCIUM CARBONATE
  9. DIPHENHYDRAMINE. [Concomitant]
     Active Substance: DIPHENHYDRAMINE
  10. SPIRONOLACTONE. [Concomitant]
     Active Substance: SPIRONOLACTONE
  11. HIZENTRA [Suspect]
     Active Substance: HUMAN IMMUNOGLOBULIN G
     Indication: ACQUIRED IMMUNODEFICIENCY SYNDROME
     Route: 058
  12. LIDOCAINE/PRILOCAINE [Concomitant]
  13. CAPTOPRIL. [Concomitant]
     Active Substance: CAPTOPRIL
  14. ASPIRIN. [Concomitant]
     Active Substance: ASPIRIN
  15. SILDENAFIL. [Concomitant]
     Active Substance: SILDENAFIL
  16. SULFAMETHOXAZOLE- TMP DS [Concomitant]
  17. CHILDREN^S MULTIVITAMINS GUMMIES [Concomitant]

REACTIONS (1)
  - Catheter placement [Unknown]
